FAERS Safety Report 7721305-2 (Version None)
Quarter: 2011Q3

REPORT INFORMATION
  Report Type: 
  Country: None (occurrence: None)
  Receive Date: 20110831
  Receipt Date: 20110824
  Transmission Date: 20111222
  Serious: Yes (Hospitalization)
  Sender: FDA-Public Use
  Company Number: PHHY2011CA76270

PATIENT
  Sex: Female

DRUGS (1)
  1. SANDOSTATIN LAR [Suspect]
     Indication: ACROMEGALY
     Dosage: 20 MG, EVERY FOUR WEEKS
     Route: 030
     Dates: start: 20110729

REACTIONS (3)
  - DIZZINESS [None]
  - NAUSEA [None]
  - ASTHENIA [None]
